FAERS Safety Report 19501779 (Version 1)
Quarter: 2021Q3

REPORT INFORMATION
  Report Type: Spontaneous
  Country: US (occurrence: US)
  Receive Date: 20210703
  Receipt Date: 20210703
  Transmission Date: 20211014
  Serious: No
  Sender: FDA-Public Use
  Company Number: None

PATIENT
  Age: 54 Year
  Sex: Female
  Weight: 102.9 kg

DRUGS (8)
  1. FOSAPREPITANT DIMEGLUMINE. [Suspect]
     Active Substance: FOSAPREPITANT DIMEGLUMINE
     Dates: end: 20210625
  2. DEXAMETHASONE. [Suspect]
     Active Substance: DEXAMETHASONE
     Dates: end: 20210628
  3. CLARITIN [Concomitant]
     Active Substance: LORATADINE
  4. SERTRALINE [Concomitant]
     Active Substance: SERTRALINE HYDROCHLORIDE
  5. LOSARTAN/HCTZ [Concomitant]
     Active Substance: HYDROCHLOROTHIAZIDE\LOSARTAN
  6. OLANZAPINE. [Suspect]
     Active Substance: OLANZAPINE
     Dates: end: 20210614
  7. ALOXI [Suspect]
     Active Substance: PALONOSETRON HYDROCHLORIDE
     Dates: end: 20210625
  8. REPATHA [Concomitant]
     Active Substance: EVOLOCUMAB

REACTIONS (6)
  - Therapy cessation [None]
  - Diplopia [None]
  - Urinary incontinence [None]
  - Leukocytosis [None]
  - Syncope [None]
  - Hypokalaemia [None]

NARRATIVE: CASE EVENT DATE: 20210613
